FAERS Safety Report 18141657 (Version 1)
Quarter: 2020Q3

REPORT INFORMATION
  Report Type: Report from Study
  Country: US (occurrence: US)
  Receive Date: 20200812
  Receipt Date: 20200812
  Transmission Date: 20201103
  Serious: Yes (Hospitalization)
  Sender: FDA-Public Use
  Company Number: US-ROCHE-2656422

PATIENT
  Age: 60 Year
  Sex: Male

DRUGS (5)
  1. GEMCITABINE. [Concomitant]
     Active Substance: GEMCITABINE
     Dosage: LAST DOSE BEFORE SAE 15/07/2020 (CYCLE NO 4)?TREATMENT WAS DELAYED, AND PERMANENT WITHDRAWAL IS CONS
     Dates: start: 20200415
  2. NAB?PACLITAXEL [Concomitant]
     Active Substance: PACLITAXEL
     Dosage: LAST DOSE BEFORE SAE:15/07/2020 (CYCLE NO 4)?TREATMENT DELAYED, BUT WILL CONTINUE
     Dates: start: 20200415
  3. ATEZOLIZUMAB. [Suspect]
     Active Substance: ATEZOLIZUMAB
     Indication: PANCREATIC CARCINOMA
     Dosage: FOR 30 OR 60 MINUTES.?FOUR OUT OF 6 INFUSIONS ADMINISTERED
     Route: 042
     Dates: start: 20200415, end: 20200609
  4. LOAD 703 [Suspect]
     Active Substance: INVESTIGATIONAL PRODUCT
     Indication: PANCREATIC CARCINOMA
     Dosage: 1X10E11VP?SIX OUT OF SIX INJECTIONS ADMINISTERED
     Route: 036
     Dates: start: 20200430, end: 20200603
  5. IBUPROFEN. [Concomitant]
     Active Substance: IBUPROFEN
     Indication: PAIN
     Dosage: 600?800 MG/DAY
     Dates: start: 202003

REACTIONS (1)
  - Haemolytic uraemic syndrome [Unknown]

NARRATIVE: CASE EVENT DATE: 20200722
